FAERS Safety Report 4965088-8 (Version None)
Quarter: 2006Q1

REPORT INFORMATION
  Report Type: 
  Country: None (occurrence: None)
  Receive Date: 20060130
  Receipt Date: 20051027
  Transmission Date: 20060701
  Serious: No
  Sender: FDA-Public Use
  Company Number: COT_0109_2005

PATIENT
  Age: 50 Year
  Sex: Female
  Weight: 114.3065 kg

DRUGS (15)
  1. VENTAVIS [Suspect]
     Indication: PULMONARY HYPERTENSION
     Dosage: 2.5 MCG 6XD IH
     Route: 055
     Dates: start: 20050502
  2. GLUCOTROL XL [Concomitant]
  3. TRACLEER [Concomitant]
  4. ATIVAN [Concomitant]
  5. K-DUR 10 [Concomitant]
  6. LANTUS [Concomitant]
  7. DEMADEX [Concomitant]
  8. AVANDIA [Concomitant]
  9. DIGOXIN [Concomitant]
  10. HYDROCHLOROTHIAZIDE [Concomitant]
  11. PERCOCET [Concomitant]
  12. HUMULIN R [Concomitant]
  13. COUMADIN [Concomitant]
  14. NEXIUM [Concomitant]
  15. ARTHROTEC [Concomitant]

REACTIONS (3)
  - DIZZINESS [None]
  - HYPOTENSION [None]
  - OEDEMA [None]
